FAERS Safety Report 15397248 (Version 14)
Quarter: 2020Q3

REPORT INFORMATION
  Report Type: Report from Study
  Country: CA (occurrence: CA)
  Receive Date: 20180918
  Receipt Date: 20200817
  Transmission Date: 20201102
  Serious: Yes (Hospitalization, Other)
  Sender: FDA-Public Use
  Company Number: PHHY2016CA172955

PATIENT
  Age: 58 Year
  Sex: Male

DRUGS (4)
  1. PANTOPRAZOLE [Concomitant]
     Active Substance: PANTOPRAZOLE
     Indication: PRODUCT USED FOR UNKNOWN INDICATION
     Dosage: UNK
     Route: 065
     Dates: start: 2016
  2. SANDOSTATIN [Suspect]
     Active Substance: OCTREOTIDE ACETATE
  3. SANDOSTATIN [Suspect]
     Active Substance: OCTREOTIDE ACETATE
     Indication: CARCINOID TUMOUR
     Dosage: 20 MG, QMO
     Route: 030
     Dates: start: 20160915
  4. SANDOSTATIN [Suspect]
     Active Substance: OCTREOTIDE ACETATE
     Dosage: 20 MG, QMO
     Route: 030
     Dates: start: 20190624

REACTIONS (23)
  - Pneumonia [Unknown]
  - Intestinal obstruction [Unknown]
  - Blood pressure increased [Unknown]
  - Throat irritation [Unknown]
  - Gait disturbance [Unknown]
  - Constipation [Recovered/Resolved]
  - Vomiting [Recovered/Resolved]
  - Dyspnoea exertional [Unknown]
  - Faecaloma [Recovered/Resolved]
  - Asthenia [Unknown]
  - Decubitus ulcer [Unknown]
  - Abnormal faeces [Recovered/Resolved]
  - Heart rate increased [Unknown]
  - Emphysema [Unknown]
  - Body temperature decreased [Unknown]
  - Vocal cord dysfunction [Unknown]
  - Injection site pain [Recovered/Resolved]
  - Dyspnoea [Unknown]
  - Lung abscess [Unknown]
  - Weight decreased [Recovering/Resolving]
  - Viral infection [Unknown]
  - Cough [Unknown]
  - Blood pressure decreased [Unknown]

NARRATIVE: CASE EVENT DATE: 201611
